FAERS Safety Report 8563896-8 (Version None)
Quarter: 2012Q3

REPORT INFORMATION
  Report Type: 
  Country: None (occurrence: None)
  Receive Date: 20120803
  Receipt Date: 20120724
  Transmission Date: 20120928
  Serious: No
  Sender: FDA-Public Use
  Company Number: US-009507513-1208USA000248

PATIENT

DRUGS (5)
  1. METFORMIN HYDROCHLORIDE [Suspect]
     Indication: DIABETES MELLITUS
  2. VICTOZA [Concomitant]
  3. JANUVIA [Suspect]
     Indication: DIABETES MELLITUS
     Route: 048
  4. JANUMET XR [Suspect]
     Indication: DIABETES MELLITUS
     Route: 048
  5. LANTUS [Concomitant]

REACTIONS (2)
  - BLOOD GLUCOSE INCREASED [None]
  - ABDOMINAL DISCOMFORT [None]
